FAERS Safety Report 4788917-X (Version None)
Quarter: 2005Q4

REPORT INFORMATION
  Report Type: 
  Country: None (occurrence: None)
  Receive Date: 20051004
  Receipt Date: 20050921
  Transmission Date: 20060501
  Serious: Yes (Hospitalization)
  Sender: FDA-Public Use
  Company Number: 2004056017

PATIENT
  Age: 40 Year
  Sex: Male

DRUGS (6)
  1. VFEND [Suspect]
     Indication: BRONCHOPULMONARY ASPERGILLOSIS
     Dosage: 400 MG (200 MG, 2 IN 1 D), ORAL
     Route: 048
     Dates: start: 20040414, end: 20040703
  2. TRAMADOL HCL [Suspect]
     Indication: ILL-DEFINED DISORDER
     Dosage: 300 MG (1 IN 1 D), ORAL
     Route: 048
     Dates: start: 20040627, end: 20040703
  3. CILASTATIN SODIUM W/IMIPENEM (CILASTATIN SODIUM, IMIPENEM) [Suspect]
     Indication: ILL-DEFINED DISORDER
  4. ACETAMINOPHEN [Concomitant]
  5. HEPARIN [Concomitant]
  6. OMEPRAZOLE [Concomitant]

REACTIONS (3)
  - CYTOLYTIC HEPATITIS [None]
  - PROTHROMBIN TIME PROLONGED [None]
  - STATUS EPILEPTICUS [None]
